FAERS Safety Report 14030384 (Version 1)
Quarter: 2017Q4

REPORT INFORMATION
  Report Type: Report from Study
  Country: KR (occurrence: KR)
  Receive Date: 20171002
  Receipt Date: 20171002
  Transmission Date: 20180321
  Serious: Yes (Other)
  Sender: FDA-Public Use
  Company Number: KR-ROCHE-1996625

PATIENT

DRUGS (1)
  1. ALTEPLASE. [Suspect]
     Active Substance: ALTEPLASE
     Indication: ISCHAEMIC STROKE
     Dosage: 10% AS A BOLUS OF 0.9 MG/KG AND 90% OF 0.9 MG/KG AS AN INFUSION OVER 60 MINUTES
     Route: 042

REACTIONS (1)
  - Haemorrhagic infarction [Unknown]
